FAERS Safety Report 4943553-7 (Version None)
Quarter: 2006Q1

REPORT INFORMATION
  Report Type: 
  Country: None (occurrence: None)
  Receive Date: 20060314
  Receipt Date: 20060214
  Transmission Date: 20060701
  Serious: Yes (Life-Threatening, Hospitalization)
  Sender: FDA-Public Use
  Company Number: JP-BRISTOL-MYERS SQUIBB COMPANY-13287412

PATIENT
  Age: 53 Year
  Sex: Female

DRUGS (7)
  1. TAXOL [Suspect]
     Indication: GASTRIC CANCER
     Route: 041
     Dates: start: 20050809, end: 20051227
  2. DECADRON SRC [Concomitant]
     Indication: PREMEDICATION
     Route: 042
     Dates: start: 20050809, end: 20051227
  3. GASTER [Concomitant]
     Indication: PREMEDICATION
     Route: 042
     Dates: start: 20050809, end: 20051227
  4. KYTRIL [Concomitant]
     Route: 042
     Dates: start: 20050809, end: 20051227
  5. FESIN [Concomitant]
     Route: 042
     Dates: start: 20051129, end: 20051227
  6. SEROTONE [Concomitant]
     Route: 048
     Dates: start: 20051206, end: 20051209
  7. VENA [Concomitant]
     Indication: PREMEDICATION
     Route: 048
     Dates: start: 20050809, end: 20051227

REACTIONS (2)
  - DYSPNOEA [None]
  - LARYNGEAL STENOSIS [None]
